FAERS Safety Report 21046587 (Version 1)
Quarter: 2022Q3

REPORT INFORMATION
  Report Type: Spontaneous
  Country: CN (occurrence: CN)
  Receive Date: 20220706
  Receipt Date: 20220706
  Transmission Date: 20221027
  Serious: Yes (Other)
  Sender: FDA-Public Use
  Company Number: None

PATIENT
  Age: 44 Year
  Sex: Female

DRUGS (13)
  1. MYCOPHENOLATE MOFETIL [Suspect]
     Active Substance: MYCOPHENOLATE MOFETIL
     Indication: Systemic lupus erythematosus
     Dosage: 1.5 GRAM/DAY
     Route: 065
     Dates: start: 2015
  2. MYCOPHENOLATE MOFETIL [Suspect]
     Active Substance: MYCOPHENOLATE MOFETIL
     Indication: Lupus nephritis
  3. SIROLIMUS [Suspect]
     Active Substance: SIROLIMUS
     Indication: Systemic lupus erythematosus
     Dosage: 2 MILLIGRAM/DAY
     Route: 065
     Dates: start: 2015
  4. SIROLIMUS [Suspect]
     Active Substance: SIROLIMUS
     Indication: Lupus nephritis
     Dosage: 1 MILLIGRAM/DAY
     Route: 065
  5. CYCLOPHOSPHAMIDE [Suspect]
     Active Substance: CYCLOPHOSPHAMIDE
     Indication: Systemic lupus erythematosus
     Dosage: 0.4 GRAM
     Route: 065
     Dates: start: 2015, end: 2015
  6. CYCLOPHOSPHAMIDE [Suspect]
     Active Substance: CYCLOPHOSPHAMIDE
     Indication: Lupus nephritis
     Dosage: 2.2 GRAM
     Route: 065
     Dates: start: 2015
  7. WARFARIN [Suspect]
     Active Substance: WARFARIN
     Indication: Deep vein thrombosis
     Dosage: UNK
     Route: 065
     Dates: start: 2015
  8. HYDROXYCHLOROQUINE [Concomitant]
     Active Substance: HYDROXYCHLOROQUINE
     Indication: Systemic lupus erythematosus
     Dosage: 0.5 MILLIGRAM/KILOGRAM/DAY
     Route: 065
  9. METHYLPREDNISOLONE [Concomitant]
     Active Substance: METHYLPREDNISOLONE
     Indication: Systemic lupus erythematosus
     Dosage: UNK
     Route: 065
     Dates: start: 2015
  10. PREDNISONE [Concomitant]
     Active Substance: PREDNISONE
     Indication: Systemic lupus erythematosus
     Dosage: 0.5 MILLIGRAM/KILOGRAM/DAY
     Route: 048
     Dates: start: 2015
  11. PREDNISONE [Concomitant]
     Active Substance: PREDNISONE
     Dosage: 1 MILLIGRAM/KILOGRAM/DAY
     Route: 065
     Dates: start: 2015
  12. PREDNISONE [Concomitant]
     Active Substance: PREDNISONE
     Dosage: 2.5 MILLIGRAM/DAY
     Route: 065
  13. Vitamin K antagonist [Concomitant]
     Indication: Deep vein thrombosis
     Dosage: UNK
     Route: 065
     Dates: start: 2015

REACTIONS (4)
  - Pneumonia [Unknown]
  - Lupus nephritis [Recovered/Resolved]
  - Soft tissue infection [Unknown]
  - Infection [Unknown]

NARRATIVE: CASE EVENT DATE: 20150101
